FAERS Safety Report 9844297 (Version 1)
Quarter: 2014Q1

REPORT INFORMATION
  Report Type: Spontaneous
  Country: IT (occurrence: None)
  Receive Date: 20140122
  Receipt Date: 20140122
  Transmission Date: 20141002
  Serious: Yes (Other)
  Sender: FDA-Public Use
  Company Number: 2014AP000236

PATIENT
  Age: 62 Year
  Sex: Female

DRUGS (1)
  1. LEVOFLOXACIN (LEVOFLOXACIN) [Suspect]
     Indication: BRONCHITIS
     Route: 048
     Dates: start: 20130814, end: 20130819

REACTIONS (3)
  - Tendon rupture [None]
  - Musculoskeletal discomfort [None]
  - Joint lock [None]
